FAERS Safety Report 8610331-7 (Version None)
Quarter: 2012Q3

REPORT INFORMATION
  Report Type: 
  Country: None (occurrence: None)
  Receive Date: 20120822
  Receipt Date: 20120815
  Transmission Date: 20120928
  Serious: Yes (Other)
  Sender: FDA-Public Use
  Company Number: PHEH2012US016074

PATIENT
  Sex: Male

DRUGS (9)
  1. EXELON [Suspect]
     Dosage: 9.5 MG, QD
     Route: 062
  2. AMLODIPINE [Concomitant]
     Dosage: 10 MG, QD
  3. PRAVASTATIN [Concomitant]
     Dosage: 10 MG, QD
  4. SEROQUEL [Concomitant]
     Dosage: 150 MG, UNK
  5. MECLIZINE [Concomitant]
     Dosage: 4 DF (125 MG), QD
  6. OXYCODONE HCL [Concomitant]
     Dosage: 4 DF, QD
  7. NAPROXEN [Concomitant]
     Dosage: 3 DF (500 MG), QD
  8. ZANTAC [Concomitant]
     Dosage: 10 MG, QD
  9. CITALOPRAM HYDROBROMIDE [Concomitant]
     Dosage: 20 MG, QD

REACTIONS (1)
  - WITHDRAWAL SYNDROME [None]
